FAERS Safety Report 18866784 (Version 10)
Quarter: 2022Q4

REPORT INFORMATION
  Report Type: Spontaneous
  Country: US (occurrence: US)
  Receive Date: 20210209
  Receipt Date: 20221004
  Transmission Date: 20230112
  Serious: No
  Sender: FDA-Public Use
  Company Number: US-PFIZER INC-2021104712

PATIENT
  Age: 67 Year
  Sex: Male
  Weight: 97.52 kg

DRUGS (5)
  1. DEPO-TESTOSTERONE [Suspect]
     Active Substance: TESTOSTERONE CYPIONATE
     Indication: Androgen deficiency
     Dosage: UNK, EVERY 14 DAYS
  2. DEPO-TESTOSTERONE [Suspect]
     Active Substance: TESTOSTERONE CYPIONATE
     Indication: Testis cancer
     Dosage: 1 ML, EVERY 2 WEEKS
     Route: 030
  3. DEPO-TESTOSTERONE [Suspect]
     Active Substance: TESTOSTERONE CYPIONATE
     Indication: Orchidectomy
     Dosage: 200 MG/ML, INJECTS INTO HIP MUSCLE EVERY 2 WEEKS
     Route: 030
  4. DEPO-TESTOSTERONE [Suspect]
     Active Substance: TESTOSTERONE CYPIONATE
     Dosage: UNK
  5. DEPO-TESTOSTERONE [Suspect]
     Active Substance: TESTOSTERONE CYPIONATE
     Dosage: 250 MG, 3 EVERY 28 DAYS(EVERY 2 WEEKS)

REACTIONS (22)
  - Drug ineffective [Unknown]
  - Product packaging confusion [Unknown]
  - Therapeutic product effect variable [Unknown]
  - Arthralgia [Unknown]
  - Depressed mood [Unknown]
  - Dysstasia [Unknown]
  - Exostosis [Unknown]
  - Gait disturbance [Not Recovered/Not Resolved]
  - Headache [Unknown]
  - Muscle spasms [Unknown]
  - Liver disorder [Unknown]
  - Neoplasm [Unknown]
  - Pain [Not Recovered/Not Resolved]
  - Pain [Unknown]
  - Pain in extremity [Unknown]
  - Weight decreased [Unknown]
  - Adverse drug reaction [Unknown]
  - Rash [Unknown]
  - Memory impairment [Unknown]
  - Periodontitis [Unknown]
  - Visual impairment [Unknown]
  - Gait disturbance [Unknown]

NARRATIVE: CASE EVENT DATE: 20201230
